FAERS Safety Report 5335968-2 (Version None)
Quarter: 2007Q2

REPORT INFORMATION
  Report Type: 
  Country: None (occurrence: None)
  Receive Date: 20070305
  Receipt Date: 20060223
  Transmission Date: 20071010
  Serious: Yes (Other)
  Sender: FDA-Public Use
  Company Number: DMR-2006-00013

PATIENT
  Age: 65 Year
  Sex: Female

DRUGS (1)
  1. EVOXAC [Suspect]
     Indication: SJOGREN'S SYNDROME
     Dosage: 90 MG (30 MG, 3 IN 1 D), PER ORAL
     Route: 048

REACTIONS (3)
  - GLOSSODYNIA [None]
  - ORAL DISCOMFORT [None]
  - VOMITING [None]
